FAERS Safety Report 8254111-3 (Version None)
Quarter: 2012Q2

REPORT INFORMATION
  Report Type: 
  Country: None (occurrence: None)
  Receive Date: 20120402
  Receipt Date: 20120320
  Transmission Date: 20120825
  Serious: No
  Sender: FDA-Public Use
  Company Number: US-AMGEN-USASP2012012448

PATIENT
  Age: 58 Year
  Sex: Male

DRUGS (1)
  1. ENBREL [Suspect]
     Indication: PSORIASIS
     Dosage: 50 MG, QWK
     Dates: start: 20111203, end: 20120223

REACTIONS (7)
  - EAR CONGESTION [None]
  - FATIGUE [None]
  - SINUS CONGESTION [None]
  - EAR DISORDER [None]
  - EAR PAIN [None]
  - SINUSITIS [None]
  - THROAT IRRITATION [None]
